FAERS Safety Report 23868162 (Version 1)
Quarter: 2024Q2

REPORT INFORMATION
  Report Type: Spontaneous
  Country: US (occurrence: US)
  Receive Date: 20240517
  Receipt Date: 20240517
  Transmission Date: 20240716
  Serious: No
  Sender: FDA-Public Use
  Company Number: US-ABBVIE-5759330

PATIENT
  Sex: Male

DRUGS (1)
  1. MAVYRET [Suspect]
     Active Substance: GLECAPREVIR\PIBRENTASVIR
     Indication: Hepatitis C
     Dosage: FREQUENCY TEXT: MAVYRET THREE TABLETS ONCE A DAY DAILY WITH FOOD?STOP DATE TEXT: COMPLETED
     Route: 048

REACTIONS (2)
  - Viral load [Not Recovered/Not Resolved]
  - Treatment failure [Not Recovered/Not Resolved]
